FAERS Safety Report 5587529-8 (Version None)
Quarter: 2008Q1

REPORT INFORMATION
  Report Type: 
  Country: None (occurrence: None)
  Receive Date: 20080107
  Receipt Date: 20071225
  Transmission Date: 20080703
  Serious: Yes (Other)
  Sender: FDA-Public Use
  Company Number: 2007-04357

PATIENT
  Age: 67 Year
  Sex: Female
  Weight: 44 kg

DRUGS (8)
  1. VELCADE [Suspect]
     Indication: MULTIPLE MYELOMA
     Dosage: 1.80 MG, INTRAVENOUS
     Route: 042
     Dates: start: 20070904, end: 20070911
  2. DEXAMETHASONE TAB [Concomitant]
  3. CLARITHROMYCIN [Concomitant]
  4. ITRACONAZOLE [Concomitant]
  5. OMEPRAL (OMEPRAZOLE) [Concomitant]
  6. LEVOFLOXACIN [Concomitant]
  7. VALTREX [Concomitant]
  8. NIFEDIPINE [Concomitant]

REACTIONS (10)
  - ACTIVITIES OF DAILY LIVING IMPAIRED [None]
  - ALTERED STATE OF CONSCIOUSNESS [None]
  - DELIRIUM [None]
  - DISORIENTATION [None]
  - DISUSE SYNDROME [None]
  - HYPONATRAEMIA [None]
  - NEUROPATHY PERIPHERAL [None]
  - PLATELET COUNT DECREASED [None]
  - URINE SODIUM INCREASED [None]
  - WHITE BLOOD CELL COUNT DECREASED [None]
